FAERS Safety Report 16533505 (Version 2)
Quarter: 2019Q3

REPORT INFORMATION
  Report Type: Spontaneous
  Country: US (occurrence: US)
  Receive Date: 20190705
  Receipt Date: 20190813
  Transmission Date: 20191004
  Serious: No
  Sender: FDA-Public Use
  Company Number: US-ASTRAZENECA-2019SE81316

PATIENT
  Sex: Male
  Weight: 99.8 kg

DRUGS (1)
  1. SYMBICORT [Suspect]
     Active Substance: BUDESONIDE\FORMOTEROL FUMARATE DIHYDRATE
     Indication: ASTHMA
     Dosage: 160/7.5 MCG, 2 PUFFS,TWO TIMES A DAY
     Route: 055

REACTIONS (6)
  - Cough [Unknown]
  - Hypersensitivity [Unknown]
  - Product dose omission [Unknown]
  - Product packaging quantity issue [Unknown]
  - Product use issue [Unknown]
  - Intentional product misuse [Unknown]
